FAERS Safety Report 17077471 (Version 2)
Quarter: 2020Q3

REPORT INFORMATION
  Report Type: Spontaneous
  Country: US (occurrence: US)
  Receive Date: 20191126
  Receipt Date: 20200902
  Transmission Date: 20201102
  Serious: No
  Sender: FDA-Public Use
  Company Number: US-AMGEN-USASP2019193398

PATIENT
  Sex: Female
  Weight: 78.01 kg

DRUGS (2)
  1. IBRANCE [Concomitant]
     Active Substance: PALBOCICLIB
     Indication: BREAST CANCER
     Dosage: 75 MILLIGRAM, QD (1 CAP DAILY FOR 21 OUT OF 28 DAYS)
     Route: 048
     Dates: start: 20191101
  2. NEULASTA [Suspect]
     Active Substance: PEGFILGRASTIM
     Indication: PRODUCT USED FOR UNKNOWN INDICATION
     Dosage: UNK
     Route: 065

REACTIONS (6)
  - Chest pain [Not Recovered/Not Resolved]
  - Drug hypersensitivity [Unknown]
  - Muscular weakness [Not Recovered/Not Resolved]
  - Platelet count decreased [Unknown]
  - Red blood cell count decreased [Unknown]
  - White blood cell count decreased [Unknown]
